FAERS Safety Report 19906609 (Version 1)
Quarter: 2021Q4

REPORT INFORMATION
  Report Type: Spontaneous
  Country: IT (occurrence: IT)
  Receive Date: 20211001
  Receipt Date: 20211001
  Transmission Date: 20220303
  Serious: Yes (Other)
  Sender: FDA-Public Use
  Company Number: None

PATIENT
  Age: 65 Year
  Sex: Male
  Weight: 60 kg

DRUGS (4)
  1. FLUOROURACIL [Suspect]
     Active Substance: FLUOROURACIL
     Indication: Pancreatic neuroendocrine tumour
     Dosage: 3400 MG
     Dates: start: 20210630, end: 20210825
  2. FLUOROURACIL [Suspect]
     Active Substance: FLUOROURACIL
     Indication: Pancreatic neuroendocrine tumour
     Dosage: 540 MG
     Dates: start: 20210630, end: 20210825
  3. OXALIPLATIN [Concomitant]
     Active Substance: OXALIPLATIN
     Indication: Pancreatic neuroendocrine tumour
     Dosage: 115 MG
     Dates: start: 20210630, end: 20210825
  4. LEVOLEUCOVORIN CALCIUM [Concomitant]
     Active Substance: LEVOLEUCOVORIN CALCIUM
     Indication: Pancreatic neuroendocrine tumour
     Dosage: 270 MG
     Dates: start: 20210630, end: 20210825

REACTIONS (4)
  - Cardiotoxicity [Unknown]
  - Left ventricular dilatation [Unknown]
  - Congestive cardiomyopathy [Unknown]
  - Chest pain [Unknown]

NARRATIVE: CASE EVENT DATE: 20210825
